FAERS Safety Report 19313986 (Version 1)
Quarter: 2021Q2

REPORT INFORMATION
  Report Type: Spontaneous
  Country: US (occurrence: US)
  Receive Date: 20210527
  Receipt Date: 20210527
  Transmission Date: 20210717
  Serious: Yes (Hospitalization, Other)
  Sender: FDA-Public Use
  Company Number: US-HIKMA PHARMACEUTICALS USA INC.-US-H14001-21-54484

PATIENT
  Age: 57 Year
  Sex: Male

DRUGS (1)
  1. TESTOSTERONE ENANTATE [Suspect]
     Active Substance: TESTOSTERONE
     Indication: HYPOGONADISM
     Route: 030

REACTIONS (6)
  - Ventricular hypokinesia [Unknown]
  - Thrombosis [Unknown]
  - Bundle branch block right [Unknown]
  - Left atrial enlargement [Unknown]
  - Cardiomyopathy [Unknown]
  - Incorrect dose administered [Unknown]
